FAERS Safety Report 6035206-1 (Version None)
Quarter: 2009Q1

REPORT INFORMATION
  Report Type: 
  Country: None (occurrence: None)
  Receive Date: 20090109
  Receipt Date: 20081217
  Transmission Date: 20090719
  Serious: Yes (Hospitalization)
  Sender: FDA-Public Use
  Company Number: 200813113BNE

PATIENT
  Sex: Male

DRUGS (8)
  1. FLUDARA [Suspect]
     Indication: WALDENSTROM'S MACROGLOBULINAEMIA
     Dosage: 70 MG, ORAL ; 10 MG, ORAL ; 80 MG, ORAL ; 80 MG, ORAL
     Route: 048
     Dates: start: 20081009, end: 20081012
  2. FLUDARA [Suspect]
     Indication: WALDENSTROM'S MACROGLOBULINAEMIA
     Dosage: 70 MG, ORAL ; 10 MG, ORAL ; 80 MG, ORAL ; 80 MG, ORAL
     Route: 048
     Dates: start: 20081112, end: 20081112
  3. FLUDARA [Suspect]
     Indication: WALDENSTROM'S MACROGLOBULINAEMIA
     Dosage: 70 MG, ORAL ; 10 MG, ORAL ; 80 MG, ORAL ; 80 MG, ORAL
     Route: 048
     Dates: start: 20081101
  4. FLUDARA [Suspect]
     Indication: WALDENSTROM'S MACROGLOBULINAEMIA
     Dosage: 70 MG, ORAL ; 10 MG, ORAL ; 80 MG, ORAL ; 80 MG, ORAL
     Route: 048
     Dates: start: 20081112
  5. ALLOPURINOL [Concomitant]
  6. SEPTRIN [Concomitant]
  7. DEXAMETHASONE [Concomitant]
  8. ONDANSETRON HCL [Concomitant]

REACTIONS (7)
  - ANAPHYLACTIC REACTION [None]
  - CHILLS [None]
  - DYSPNOEA [None]
  - HYPERSENSITIVITY [None]
  - HYPOTENSION [None]
  - PYREXIA [None]
  - RASH GENERALISED [None]
